FAERS Safety Report 8422637-5 (Version None)
Quarter: 2012Q2

REPORT INFORMATION
  Report Type: 
  Country: None (occurrence: None)
  Receive Date: 20120608
  Receipt Date: 20120530
  Transmission Date: 20120825
  Serious: Yes (Other)
  Sender: FDA-Public Use
  Company Number: AU-JNJFOC-20120202827

PATIENT
  Sex: Male

DRUGS (10)
  1. PERINDOPRIL ERBUMINE [Concomitant]
     Route: 065
  2. STELARA [Suspect]
     Route: 058
     Dates: start: 20120524
  3. STELARA [Suspect]
     Route: 058
     Dates: start: 20111228
  4. STELARA [Suspect]
     Route: 058
     Dates: start: 20120306
  5. STELARA [Suspect]
     Route: 058
     Dates: start: 20120419
  6. METHOTREXATE [Concomitant]
     Route: 065
  7. PREDNISONE TAB [Concomitant]
     Indication: PRODUCT USED FOR UNKNOWN INDICATION
     Route: 065
  8. STELARA [Suspect]
     Route: 058
     Dates: start: 20120501
  9. STELARA [Suspect]
     Indication: PSORIASIS
     Route: 058
     Dates: start: 20111230
  10. MOBIC [Concomitant]
     Route: 065

REACTIONS (9)
  - DRUG INEFFECTIVE [None]
  - CONDITION AGGRAVATED [None]
  - RENAL PAIN [None]
  - HAEMATOMA [None]
  - GOUT [None]
  - UNDERDOSE [None]
  - ARTHRALGIA [None]
  - JOINT SWELLING [None]
  - PAIN [None]
